FAERS Safety Report 19907169 (Version 3)
Quarter: 2022Q1

REPORT INFORMATION
  Report Type: Report from Study
  Country: US (occurrence: US)
  Receive Date: 20211001
  Receipt Date: 20220105
  Transmission Date: 20220423
  Serious: Yes (Other)
  Sender: FDA-Public Use
  Company Number: US-GW PHARMA-202109USGW04704

PATIENT

DRUGS (3)
  1. EPIDIOLEX [Suspect]
     Active Substance: CANNABIDIOL
     Indication: Product used for unknown indication
     Dosage: 5MG/KG/DAY, 200 MILLIGRAM, BID
     Route: 048
     Dates: start: 20210706, end: 202109
  2. EPIDIOLEX [Suspect]
     Active Substance: CANNABIDIOL
     Dosage: 12MG/KG/DAY, 500 MILLIGRAM, BID
     Route: 048
     Dates: start: 202109, end: 202109
  3. EPIDIOLEX [Suspect]
     Active Substance: CANNABIDIOL
     Dosage: 8.5MG/KG/DAY, 350 MILLIGRAM, BID
     Route: 048
     Dates: start: 202109

REACTIONS (3)
  - Seizure [Unknown]
  - Seizure [Recovered/Resolved]
  - Intentional underdose [Unknown]

NARRATIVE: CASE EVENT DATE: 20210901
